FAERS Safety Report 7162796-8 (Version None)
Quarter: 2010Q4

REPORT INFORMATION
  Report Type: 
  Country: None (occurrence: None)
  Receive Date: 20101215
  Receipt Date: 20091218
  Transmission Date: 20110411
  Serious: Yes (Other)
  Sender: FDA-Public Use
  Company Number: DK-PFIZER INC-2009302975

PATIENT
  Sex: Female

DRUGS (9)
  1. LYRICA [Suspect]
     Indication: GENERALISED ANXIETY DISORDER
     Dosage: 150 MORNING AND 125 EVENING
     Route: 048
     Dates: start: 20080101
  2. ELTROXIN [Suspect]
     Dosage: UNK
  3. CENTYL MITE W/POTASSIUM CHLORIDE [Concomitant]
     Dosage: UNK
     Dates: end: 20091125
  4. LISINOPRIL [Concomitant]
  5. SYMBICORT [Concomitant]
  6. VENTOLIN [Concomitant]
  7. LANSOPRAZOL [Concomitant]
  8. INFLUENZA VACCINE [Concomitant]
     Indication: INFLUENZA IMMUNISATION
     Dosage: UNK
     Route: 030
     Dates: start: 20091103, end: 20091103
  9. INFLUENZA VACCINE [Concomitant]
     Dosage: UNK
     Route: 030
     Dates: start: 20091124, end: 20091124

REACTIONS (6)
  - ABDOMINAL DISTENSION [None]
  - DIZZINESS [None]
  - FATIGUE [None]
  - PALPITATIONS [None]
  - TREMOR [None]
  - WEIGHT INCREASED [None]
